FAERS Safety Report 13638142 (Version 1)
Quarter: 2017Q2

REPORT INFORMATION
  Report Type: Spontaneous
  Country: None (occurrence: FR)
  Receive Date: 20170609
  Receipt Date: 20170609
  Transmission Date: 20170830
  Serious: Yes (Hospitalization)
  Sender: FDA-Public Use
  Company Number: FR-MEDAC PHARMA, INC.-2021760

PATIENT
  Age: 18 Year
  Sex: Male

DRUGS (4)
  1. ENTYVIO [Concomitant]
     Active Substance: VEDOLIZUMAB
     Route: 041
     Dates: start: 20170329
  2. METOJECT [Suspect]
     Active Substance: METHOTREXATE SODIUM
     Indication: COLITIS
     Route: 058
  3. INFLECTRA [Suspect]
     Active Substance: INFLIXIMAB-DYYB
     Route: 041
     Dates: start: 20160829, end: 20170301
  4. PENTASA [Suspect]
     Active Substance: MESALAMINE
     Route: 048
     Dates: start: 20160101

REACTIONS (3)
  - Glioma [Not Recovered/Not Resolved]
  - Central nervous system lesion [Not Recovered/Not Resolved]
  - Product use in unapproved indication [None]

NARRATIVE: CASE EVENT DATE: 20170331
